FAERS Safety Report 10173964 (Version 3)
Quarter: 2014Q3

REPORT INFORMATION
  Report Type: Spontaneous
  Country: US (occurrence: US)
  Receive Date: 20140515
  Receipt Date: 20140804
  Transmission Date: 20150326
  Serious: Yes (Other)
  Sender: FDA-Public Use
  Company Number: US-BAYER-2014-071548

PATIENT
  Age: 39 Year
  Sex: Female
  Weight: 68 kg

DRUGS (1)
  1. MIRENA [Suspect]
     Active Substance: LEVONORGESTREL
     Indication: CONTRACEPTION
     Dosage: 20 MCG/24HR, CONT
     Route: 015
     Dates: start: 20071129, end: 20130628

REACTIONS (6)
  - Embedded device [None]
  - Medical device discomfort [None]
  - Medical device pain [None]
  - Abdominal pain lower [None]
  - Injury [None]
  - Pain [None]

NARRATIVE: CASE EVENT DATE: 20130628
